FAERS Safety Report 6273310-3 (Version None)
Quarter: 2009Q3

REPORT INFORMATION
  Report Type: 
  Country: None (occurrence: None)
  Receive Date: 20090720
  Receipt Date: 20090709
  Transmission Date: 20100115
  Serious: Yes (Hospitalization)
  Sender: FDA-Public Use
  Company Number: NL-ROCHE-641351

PATIENT
  Weight: 90 kg

DRUGS (3)
  1. CAPECITABINE [Suspect]
     Indication: GASTRIC CANCER
     Dosage: LAST DOSE PRIOR TO SAE: 21 APRIL 2009. FREQ. AND ROUTE (PER PROTOCOL): DAY 1-14 EVERY 3 WEEKS.
     Route: 048
     Dates: start: 20090303
  2. EPIRUBICIN [Suspect]
     Indication: GASTRIC CANCER
     Dosage: PER PROTOCOL: ON DAY 1 AS AN INTRAVENOUS PUSH EVERY 3 WEEKS IMMEDIATE PRIOR TO THE CISPLATIN.
     Route: 042
     Dates: start: 20090303
  3. CISPLATIN [Suspect]
     Indication: GASTRIC CANCER
     Dosage: DOSE ROUTE, FREQ.-PER PROTOCOL. LAST DOSE PRIOR TO SAE: 21 APRIL 09.
     Route: 042
     Dates: start: 20090303

REACTIONS (1)
  - ABDOMINAL INFECTION [None]
